FAERS Safety Report 5537730-4 (Version None)
Quarter: 2007Q4

REPORT INFORMATION
  Report Type: 
  Country: None (occurrence: None)
  Receive Date: 20071207
  Receipt Date: 20071203
  Transmission Date: 20080405
  Serious: Yes (Hospitalization)
  Sender: FDA-Public Use
  Company Number: IE-SANOFI-SYNTHELABO-F01200701459

PATIENT
  Sex: Female
  Weight: 47 kg

DRUGS (19)
  1. LISINOPRIL [Concomitant]
     Route: 048
  2. TRAMADOL HCL [Concomitant]
     Route: 048
  3. ZOLPIDEM TARTRATE [Concomitant]
     Route: 048
  4. FRUSEMIDE [Concomitant]
     Route: 048
  5. ATORVASTATIN [Concomitant]
     Route: 048
  6. AMLODIPINE [Concomitant]
     Route: 048
  7. LANSOPRAZOLE [Concomitant]
     Route: 048
  8. ATENOLOL [Concomitant]
     Route: 048
  9. CAPECITABINE [Suspect]
     Dosage: 800 MG (DOSE NOT GIVEN)
     Route: 048
     Dates: start: 20071017
  10. EPIRUBICIN [Suspect]
     Route: 042
     Dates: start: 20071107, end: 20071107
  11. OXALIPLATIN [Suspect]
     Indication: OESOPHAGEAL SQUAMOUS CELL CARCINOMA
     Route: 042
     Dates: start: 20071107, end: 20071107
  12. ALOXI [Concomitant]
     Dosage: 250 MCG
     Dates: start: 20071107, end: 20071107
  13. ASPIRIN [Concomitant]
     Dosage: 75 MG
  14. CYCLIZINE [Concomitant]
     Dosage: 150 MG
     Route: 048
     Dates: start: 20071107, end: 20071108
  15. DEXAMETHASONE TAB [Concomitant]
     Dosage: 8 MG
     Route: 042
     Dates: start: 20071107, end: 20071109
  16. POTASSIUM CHLORIDE [Concomitant]
     Route: 048
     Dates: start: 20071107, end: 20071109
  17. LORMETAZEPAM [Concomitant]
     Dosage: 1 MG
     Dates: end: 20071030
  18. LACTULOSE [Concomitant]
     Dosage: 10 ML
     Dates: start: 20071022
  19. NYSTATIN [Concomitant]
     Dosage: 3 ML
     Dates: start: 20071017

REACTIONS (4)
  - PERIPHERAL MOTOR NEUROPATHY [None]
  - PERIPHERAL SENSORY NEUROPATHY [None]
  - VOCAL CORD PARALYSIS [None]
  - VOMITING [None]
